FAERS Safety Report 21992670 (Version 1)
Quarter: 2023Q1

REPORT INFORMATION
  Report Type: Spontaneous
  Country: US (occurrence: US)
  Receive Date: 20230215
  Receipt Date: 20230215
  Transmission Date: 20230417
  Serious: No
  Sender: FDA-Public Use
  Company Number: US-BIOGEN-2022BI01165113

PATIENT
  Age: 40 Year
  Sex: Female

DRUGS (2)
  1. TYSABRI [Suspect]
     Active Substance: NATALIZUMAB
     Indication: Multiple sclerosis
     Route: 050
     Dates: start: 20190605, end: 20220914
  2. TYSABRI [Suspect]
     Active Substance: NATALIZUMAB
     Route: 050
     Dates: start: 20221026, end: 20221026

REACTIONS (6)
  - Product dose omission issue [Unknown]
  - Accidental underdose [Unknown]
  - Vein rupture [Unknown]
  - Dehydration [Unknown]
  - Peripheral venous disease [Unknown]
  - Poor venous access [Unknown]

NARRATIVE: CASE EVENT DATE: 20221001
